FAERS Safety Report 18926239 (Version 2)
Quarter: 2021Q1

REPORT INFORMATION
  Report Type: Spontaneous
  Country: FR (occurrence: FR)
  Receive Date: 20210223
  Receipt Date: 20210303
  Transmission Date: 20210420
  Serious: Yes (Other)
  Sender: FDA-Public Use
  Company Number: FR-AUROBINDO-AUR-APL-2021-007203

PATIENT
  Age: 70 Year
  Sex: Male

DRUGS (1)
  1. LATANOPROST 0,005 %, EYE DROPS SOLUTION [Suspect]
     Active Substance: LATANOPROST
     Indication: PRODUCT USED FOR UNKNOWN INDICATION
     Dosage: UNK
     Route: 065

REACTIONS (4)
  - Atrial tachycardia [Unknown]
  - Arrhythmia [Unknown]
  - Dizziness [Unknown]
  - Intentional product misuse [Unknown]
